FAERS Safety Report 25534869 (Version 2)
Quarter: 2025Q3

REPORT INFORMATION
  Report Type: Spontaneous
  Country: US (occurrence: US)
  Receive Date: 20250709
  Receipt Date: 20250716
  Transmission Date: 20251020
  Serious: Yes (Other)
  Sender: ROCHE
  Company Number: US-ROCHE-10000331507

PATIENT

DRUGS (2)
  1. OCREVUS [Suspect]
     Active Substance: OCRELIZUMAB
     Indication: Secondary progressive multiple sclerosis
     Route: 050
  2. OCREVUS [Suspect]
     Active Substance: OCRELIZUMAB
     Route: 050

REACTIONS (4)
  - Progressive multiple sclerosis [Unknown]
  - Gait disturbance [Unknown]
  - Dysstasia [Unknown]
  - Visual impairment [Unknown]
